FAERS Safety Report 25478715 (Version 1)
Quarter: 2025Q2

REPORT INFORMATION
  Report Type: Spontaneous
  Country: PT (occurrence: PT)
  Receive Date: 20250625
  Receipt Date: 20250625
  Transmission Date: 20250717
  Serious: Yes (Other)
  Sender: TEVA
  Company Number: None

PATIENT
  Age: 62 Year
  Sex: Female
  Weight: 47 kg

DRUGS (6)
  1. VENLAFAXINE [Suspect]
     Active Substance: VENLAFAXINE HYDROCHLORIDE
     Indication: Depression
     Dosage: STARTED WITH A DOSE OF 37.5 MG FOR 6-7 DAYS, AFTER WHICH IT WAS INCREASED TO 75 MG/DAY
     Route: 048
     Dates: start: 20250409, end: 20250416
  2. VENLAFAXINE [Suspect]
     Active Substance: VENLAFAXINE HYDROCHLORIDE
     Indication: Depression
     Dosage: STARTED WITH A DOSE OF 37.5 MG FOR 6-7 DAYS, AFTER WHICH IT WAS INCREASED TO 75 MG/DAY
     Route: 048
     Dates: start: 20250402, end: 20250408
  3. VENLAFAXINE [Suspect]
     Active Substance: VENLAFAXINE HYDROCHLORIDE
     Indication: Depression
     Dosage: REDUCED DOSE TO 37.5MG/DAY UNTIL SUSPENSION
     Route: 048
     Dates: start: 20250417, end: 20250425
  4. Losartan Hydrochlorothiazida [Concomitant]
     Indication: Product used for unknown indication
     Dosage: 1 COMP TO PA: LOSARTAN + HYDROCHLOROTHIAZIDE, 50 MG + 12.5 MG
     Route: 048
  5. Bisacodilo [Concomitant]
     Indication: Product used for unknown indication
     Route: 048
  6. TRAZODONE HYDROCHLORIDE [Concomitant]
     Active Substance: TRAZODONE HYDROCHLORIDE
     Indication: Product used for unknown indication
     Dosage: 1/2 COMP AT BEDTIME
     Route: 048

REACTIONS (5)
  - Gait inability [Recovered/Resolved]
  - Balance disorder [Recovering/Resolving]
  - Diplopia [Recovered/Resolved]
  - Disturbance in attention [Not Recovered/Not Resolved]
  - Ataxia [Recovering/Resolving]

NARRATIVE: CASE EVENT DATE: 20250402
